FAERS Safety Report 19048422 (Version 3)
Quarter: 2021Q2

REPORT INFORMATION
  Report Type: Report from Study
  Country: None (occurrence: US)
  Receive Date: 20210323
  Receipt Date: 20210608
  Transmission Date: 20210717
  Serious: Yes (Other)
  Sender: FDA-Public Use
  Company Number: US-ABBVIE-21K-163-3827908-00

PATIENT
  Sex: Female
  Weight: 97.61 kg

DRUGS (9)
  1. AMBIEN CR [Concomitant]
     Active Substance: ZOLPIDEM TARTRATE
     Indication: SLEEP DISORDER THERAPY
  2. RINVOQ [Suspect]
     Active Substance: UPADACITINIB
     Indication: RHEUMATOID ARTHRITIS
     Route: 048
  3. ACIPHEX [Concomitant]
     Active Substance: RABEPRAZOLE SODIUM
     Indication: GASTROOESOPHAGEAL REFLUX DISEASE
  4. LEXAPRO [Concomitant]
     Active Substance: ESCITALOPRAM OXALATE
     Indication: ANXIETY
  5. IBUPROFEN. [Concomitant]
     Active Substance: IBUPROFEN
     Indication: PAIN
  6. CLARINEX [Concomitant]
     Active Substance: DESLORATADINE
     Indication: HYPERSENSITIVITY
  7. SINGULAIR [Concomitant]
     Active Substance: MONTELUKAST SODIUM
     Indication: HYPERSENSITIVITY
  8. METHOTREXATE. [Concomitant]
     Active Substance: METHOTREXATE
     Indication: ARTHRITIS
  9. IBUPROFEN. [Concomitant]
     Active Substance: IBUPROFEN
     Indication: SWELLING

REACTIONS (6)
  - Post procedural complication [Unknown]
  - Arthritis [Unknown]
  - Therapeutic product effect incomplete [Not Recovered/Not Resolved]
  - Erythema [Unknown]
  - Foot operation [Recovering/Resolving]
  - Hypoaesthesia [Not Recovered/Not Resolved]
